FAERS Safety Report 8517022-1 (Version None)
Quarter: 2012Q3

REPORT INFORMATION
  Report Type: 
  Country: None (occurrence: None)
  Receive Date: 20120718
  Receipt Date: 20120706
  Transmission Date: 20120928
  Serious: Yes (Other)
  Sender: FDA-Public Use
  Company Number: BR-BAYER-2012-067645

PATIENT
  Age: 42 Year
  Sex: Female
  Weight: 97.052 kg

DRUGS (2)
  1. MIRENA [Suspect]
     Indication: MENORRHAGIA
  2. MIRENA [Suspect]
     Indication: CONTRACEPTION
     Dosage: 20 ?G/D, CONT
     Route: 015
     Dates: start: 20110101

REACTIONS (3)
  - VASCULAR ANOMALY [None]
  - UTERINE LEIOMYOMA [None]
  - UTERINE ENLARGEMENT [None]
